FAERS Safety Report 10100781 (Version 1)
Quarter: 2014Q2

REPORT INFORMATION
  Report Type: Spontaneous
  Country: IT (occurrence: IT)
  Receive Date: 20140423
  Receipt Date: 20140423
  Transmission Date: 20141212
  Serious: Yes (Hospitalization)
  Sender: FDA-Public Use
  Company Number: IT-DSJP-DSE-2014-105586

PATIENT
  Sex: 0

DRUGS (1)
  1. OLPREZIDE 20 MG/25 MG [Suspect]
     Indication: HYPERTENSION
     Dosage: 200/250 MG, QD
     Dates: start: 20130719, end: 20130719

REACTIONS (3)
  - Drug abuse [Recovered/Resolved]
  - Hypokalaemia [Recovering/Resolving]
  - Headache [Recovering/Resolving]
